FAERS Safety Report 10258365 (Version 1)
Quarter: 2014Q2

REPORT INFORMATION
  Report Type: Spontaneous
  Country: GB (occurrence: GB)
  Receive Date: 20140625
  Receipt Date: 20140625
  Transmission Date: 20141212
  Serious: Yes (Hospitalization)
  Sender: FDA-Public Use
  Company Number: GB-PFIZER INC-2014172925

PATIENT
  Age: 59 Year
  Sex: Male

DRUGS (19)
  1. CHAMPIX [Suspect]
     Indication: SMOKING CESSATION THERAPY
     Dosage: 1 MG, 2X/DAY
     Route: 048
     Dates: start: 20140331, end: 20140603
  2. SYMBICORT [Concomitant]
     Dosage: UNK
     Route: 055
  3. ORAMORPH [Concomitant]
     Dosage: UNK
  4. ZOMORPH [Concomitant]
     Dosage: UNK
  5. TIOTROPIUM [Concomitant]
     Dosage: UNK
     Route: 055
  6. FUROSEMIDE [Concomitant]
     Dosage: UNK
  7. ISOSORBIDE MONONITRATE [Concomitant]
     Dosage: UNK
  8. DOMPERIDONE [Concomitant]
     Dosage: UNK
  9. AMLODIPINE [Concomitant]
     Dosage: UNK
  10. OMEPRAZOLE [Concomitant]
     Dosage: UNK
  11. PARACETAMOL [Concomitant]
     Dosage: UNK
  12. FERROUS FUMARATE [Concomitant]
     Dosage: UNK
  13. ATORVASTATIN [Concomitant]
     Dosage: UNK
  14. BISOPROLOL [Concomitant]
     Dosage: UNK
  15. BETAHISTINE [Concomitant]
     Dosage: UNK
  16. AMITRIPTYLINE [Concomitant]
     Dosage: UNK
  17. SALBUTAMOL [Concomitant]
     Dosage: UNK
     Route: 055
  18. CETIRIZINE [Concomitant]
     Dosage: UNK
  19. CLOPIDOGREL [Concomitant]
     Dosage: UNK

REACTIONS (2)
  - Immune thrombocytopenic purpura [Recovering/Resolving]
  - Rectal haemorrhage [Recovering/Resolving]
